FAERS Safety Report 13687242 (Version 3)
Quarter: 2017Q3

REPORT INFORMATION
  Report Type: Spontaneous
  Country: JP (occurrence: JP)
  Receive Date: 20170623
  Receipt Date: 20170725
  Transmission Date: 20171127
  Serious: Yes (Death, Other)
  Sender: FDA-Public Use
  Company Number: JP-BAXTER-2017BAX025733

PATIENT
  Age: 14 Year
  Sex: Female

DRUGS (10)
  1. GEMCITABINE HYDROCHLORIDE. [Suspect]
     Active Substance: GEMCITABINE HYDROCHLORIDE
     Indication: SYNOVIAL SARCOMA
     Route: 065
  2. CELLTOP 50 MG, CAPSULE [Suspect]
     Active Substance: ETOPOSIDE
     Indication: SYNOVIAL SARCOMA
     Dosage: HIGH DOSE CHEMOTHERAPY
     Route: 065
  3. CARBOPLATIN. [Suspect]
     Active Substance: CARBOPLATIN
     Indication: SYNOVIAL SARCOMA
     Dosage: HIGH DOSE CHEMOTHERAPY
     Route: 065
  4. VINCRISTINE SULFATE. [Suspect]
     Active Substance: VINCRISTINE SULFATE
     Indication: SYNOVIAL SARCOMA
     Route: 065
  5. IFEX [Suspect]
     Active Substance: IFOSFAMIDE
     Indication: SYNOVIAL SARCOMA
     Route: 065
  6. CELLTOP 50 MG, CAPSULE [Suspect]
     Active Substance: ETOPOSIDE
     Indication: OFF LABEL USE
  7. CISPLATIN. [Suspect]
     Active Substance: CISPLATIN
     Indication: SYNOVIAL SARCOMA
     Route: 065
  8. DOCETAXEL. [Suspect]
     Active Substance: DOCETAXEL
     Indication: SYNOVIAL SARCOMA
     Route: 065
  9. MELPHALAN. [Suspect]
     Active Substance: MELPHALAN
     Indication: SYNOVIAL SARCOMA
     Dosage: HIGH DOSE CHEMOTHERAPY
     Route: 065
  10. DOXORUBICIN HYDROCHLORIDE. [Suspect]
     Active Substance: DOXORUBICIN HYDROCHLORIDE
     Indication: SYNOVIAL SARCOMA
     Route: 065

REACTIONS (3)
  - Death [Fatal]
  - Myelodysplastic syndrome [Unknown]
  - Acute myeloid leukaemia [Unknown]
